FAERS Safety Report 23370443 (Version 1)
Quarter: 2024Q1

REPORT INFORMATION
  Report Type: Spontaneous
  Country: US (occurrence: None)
  Receive Date: 20240105
  Receipt Date: 20240105
  Transmission Date: 20240410
  Serious: Yes (Life-Threatening, Hospitalization, Other)
  Sender: FDA-Public Use
  Company Number: None

PATIENT
  Age: 71 Year
  Sex: Female
  Weight: 63 kg

DRUGS (2)
  1. MOLNUPIRAVIR [Suspect]
     Active Substance: MOLNUPIRAVIR
     Indication: COVID-19
  2. FLECAINIDE [Concomitant]
     Active Substance: FLECAINIDE
     Dates: start: 20230701

REACTIONS (2)
  - Toxicity to various agents [None]
  - Arrhythmia [None]

NARRATIVE: CASE EVENT DATE: 20240103
